FAERS Safety Report 8003513-9 (Version None)
Quarter: 2011Q4

REPORT INFORMATION
  Report Type: 
  Country: None (occurrence: None)
  Receive Date: 20111222
  Receipt Date: 20111206
  Transmission Date: 20120403
  Serious: Yes (Life-Threatening, Hospitalization)
  Sender: FDA-Public Use
  Company Number: FR-PFIZER INC-K201100677

PATIENT
  Age: 70 Year
  Sex: Male
  Weight: 77 kg

DRUGS (13)
  1. GENTAMICIN [Suspect]
     Indication: ENDOCARDITIS
     Dosage: 240 MG, 1X/DAY
     Route: 042
     Dates: start: 20110105, end: 20110119
  2. ZINACEF [Suspect]
     Indication: ENDOCARDITIS
     Dosage: 1.5-3 G, QD
     Route: 042
     Dates: start: 20110113, end: 20110119
  3. FENISTIL [Concomitant]
     Dosage: 1 DF, 1X/DAY
     Route: 048
     Dates: start: 20110108, end: 20110108
  4. RAMIPRIL [Suspect]
     Dosage: 2.5 MG, 1X/DAY
     Route: 048
     Dates: start: 20100201, end: 20110119
  5. FRAXIPARIN [Concomitant]
     Dosage: 2850 IU, QD
     Route: 058
     Dates: start: 20110116, end: 20110118
  6. FRAXIPARIN [Concomitant]
     Dosage: 2850 IU, QD
     Route: 058
     Dates: start: 20110104, end: 20110109
  7. GENTAMICIN [Suspect]
     Dosage: 80 MG, 1X/DAY
     Route: 042
     Dates: start: 20110103, end: 20110103
  8. GENTAMICIN [Suspect]
     Dosage: 160 MG, 1X/DAY
     Route: 017
     Dates: start: 20110104, end: 20110104
  9. MIDAZOLAM [Concomitant]
     Dosage: 5 MG, SINGLE
     Route: 042
     Dates: start: 20110102, end: 20110102
  10. MIDAZOLAM [Concomitant]
     Dosage: 4.5 MG, SINGLE
     Route: 042
     Dates: start: 20110113, end: 20110113
  11. PROTAPHAN [Concomitant]
     Dosage: UNK
     Route: 058
     Dates: start: 19950101
  12. FENISTIL [Concomitant]
     Dosage: 3 DF, 1X/DAY
     Route: 048
     Dates: start: 20110110, end: 20110118
  13. CLINDAMYCIN HCL [Concomitant]
     Dosage: 600-1200 MG, QD
     Route: 042
     Dates: start: 20110109, end: 20110113

REACTIONS (6)
  - BLOOD CREATININE INCREASED [None]
  - EMPYEMA [None]
  - RENAL FAILURE ACUTE [None]
  - GLOMERULAR FILTRATION RATE DECREASED [None]
  - ENDOCARDITIS [None]
  - BLOOD UREA INCREASED [None]
